FAERS Safety Report 6132840-5 (Version None)
Quarter: 2009Q1

REPORT INFORMATION
  Report Type: 
  Country: None (occurrence: None)
  Receive Date: 20090326
  Receipt Date: 20090323
  Transmission Date: 20090719
  Serious: Yes (Death)
  Sender: FDA-Public Use
  Company Number: CN-ABBOTT-09P-035-0563856-00

PATIENT
  Sex: Male
  Weight: 45 kg

DRUGS (3)
  1. ALUVIA TABLETS 200MG/50MG [Suspect]
     Indication: ACQUIRED IMMUNODEFICIENCY SYNDROME
     Dosage: 800/200MG, 400/100MG BID
     Route: 048
     Dates: start: 20080813, end: 20090218
  2. ZIDOVUDINE [Concomitant]
     Indication: ACQUIRED IMMUNODEFICIENCY SYNDROME
     Route: 048
     Dates: start: 20080813, end: 20090218
  3. LAMIVUDINE [Concomitant]
     Indication: ACQUIRED IMMUNODEFICIENCY SYNDROME
     Dates: start: 20080813, end: 20090218

REACTIONS (4)
  - ASTHENIA [None]
  - LISTLESS [None]
  - SOMNOLENCE [None]
  - WEIGHT DECREASED [None]
